FAERS Safety Report 4590589-4 (Version None)
Quarter: 2005Q1

REPORT INFORMATION
  Report Type: 
  Country: None (occurrence: None)
  Receive Date: 20050224
  Receipt Date: 20050221
  Transmission Date: 20050727
  Serious: Yes (Other)
  Sender: FDA-Public Use
  Company Number: GB-GLAXOSMITHKLINE-B0372370A

PATIENT
  Age: 30 Year
  Sex: Male

DRUGS (1)
  1. MALARONE [Suspect]
     Indication: MALARIA PROPHYLAXIS
     Route: 048

REACTIONS (7)
  - ABASIA [None]
  - BALANCE DISORDER [None]
  - BLINDNESS [None]
  - DEHYDRATION [None]
  - DIZZINESS [None]
  - IMPAIRED DRIVING ABILITY [None]
  - MUSCLE CONTRACTIONS INVOLUNTARY [None]
